FAERS Safety Report 5123871-2 (Version None)
Quarter: 2006Q4

REPORT INFORMATION
  Report Type: 
  Country: None (occurrence: None)
  Receive Date: 20061010
  Receipt Date: 20061003
  Transmission Date: 20070319
  Serious: Yes (Hospitalization)
  Sender: FDA-Public Use
  Company Number: FR-GLAXOSMITHKLINE-B0441292A

PATIENT
  Age: 16 Year
  Sex: Male

DRUGS (1)
  1. AUGMENTIN [Suspect]
     Indication: DENTAL CARE
     Route: 048
     Dates: start: 20060823, end: 20060826

REACTIONS (4)
  - DIARRHOEA [None]
  - NAUSEA [None]
  - VOMITING [None]
  - WEIGHT DECREASED [None]
